FAERS Safety Report 17668994 (Version 2)
Quarter: 2020Q2

REPORT INFORMATION
  Report Type: Spontaneous
  Country: DE (occurrence: DE)
  Receive Date: 20200415
  Receipt Date: 20200428
  Transmission Date: 20200713
  Serious: Yes (Death, Life-Threatening, Other)
  Sender: FDA-Public Use
  Company Number: DE-SUN PHARMACEUTICAL INDUSTRIES LTD-2020RR-244143

PATIENT
  Age: 24 Year
  Sex: Female

DRUGS (7)
  1. TREOSULFAN [Suspect]
     Active Substance: TREOSULFAN
     Indication: UVEAL MELANOMA
  2. GEMCITABINE. [Suspect]
     Active Substance: GEMCITABINE
     Indication: UVEAL MELANOMA
  3. CISPLATIN. [Suspect]
     Active Substance: CISPLATIN
     Indication: THERAPEUTIC EMBOLISATION
     Dosage: UNK
     Route: 065
  4. TREOSULFAN [Suspect]
     Active Substance: TREOSULFAN
     Indication: CHEMOTHERAPY
     Dosage: 3500 MILLIGRAM/SQ. METER
     Route: 065
  5. TREOSULFAN [Suspect]
     Active Substance: TREOSULFAN
     Indication: METASTASES TO LIVER
  6. GEMCITABINE. [Suspect]
     Active Substance: GEMCITABINE
     Indication: CHEMOTHERAPY
     Dosage: 1000 MILLIGRAM/SQ. METER
     Route: 065
  7. GEMCITABINE. [Suspect]
     Active Substance: GEMCITABINE
     Indication: METASTASES TO LIVER

REACTIONS (5)
  - Recurrent cancer [Unknown]
  - Hepatic failure [Fatal]
  - Disease progression [Unknown]
  - Treatment failure [Unknown]
  - Thrombosis [Unknown]
